FAERS Safety Report 5050732-X (Version None)
Quarter: 2006Q3

REPORT INFORMATION
  Report Type: 
  Country: None (occurrence: None)
  Receive Date: 20060713
  Receipt Date: 20060703
  Transmission Date: 20061208
  Serious: Yes (Death, Life-Threatening, Hospitalization, Other)
  Sender: FDA-Public Use
  Company Number: GB-BRISTOL-MYERS SQUIBB COMPANY-13437009

PATIENT
  Age: 69 Year
  Sex: Female

DRUGS (7)
  1. METFORMIN HCL [Suspect]
     Indication: DIABETES MELLITUS NON-INSULIN-DEPENDENT
     Route: 048
     Dates: end: 20060208
  2. PERINDOPRIL ERBUMINE [Suspect]
     Indication: DIABETIC NEPHROPATHY
     Route: 048
     Dates: end: 20060208
  3. ACARBOSE [Concomitant]
     Route: 048
  4. CALCICHEW [Concomitant]
     Indication: OSTEOPOROSIS
     Route: 048
  5. FERROUS SULFATE TAB [Concomitant]
     Indication: MYELODYSPLASTIC SYNDROME
     Route: 048
  6. FOLIC ACID [Concomitant]
     Indication: MYELODYSPLASTIC SYNDROME
     Route: 048
  7. GLICLAZIDE [Concomitant]
     Indication: DIABETES MELLITUS NON-INSULIN-DEPENDENT
     Route: 048

REACTIONS (3)
  - DIARRHOEA [None]
  - LACTIC ACIDOSIS [None]
  - RENAL FAILURE ACUTE [None]
